FAERS Safety Report 6220206-9 (Version None)
Quarter: 2009Q2

REPORT INFORMATION
  Report Type: 
  Country: None (occurrence: None)
  Receive Date: 20090609
  Receipt Date: 20090602
  Transmission Date: 20091009
  Serious: Yes (Hospitalization)
  Sender: FDA-Public Use
  Company Number: FR-MERCK-0906FRA00009

PATIENT
  Age: 82 Year
  Sex: Female

DRUGS (6)
  1. MODURETIC 5-50 [Suspect]
     Route: 048
     Dates: end: 20090301
  2. CICLETANINE HYDROCHLORIDE [Suspect]
     Route: 048
     Dates: end: 20090301
  3. LOPERAMIDE HYDROCHLORIDE [Suspect]
     Route: 048
     Dates: end: 20090301
  4. ACETAMINOPHEN AND TRAMADOL HYDROCHLORIDE [Suspect]
     Route: 048
     Dates: end: 20090301
  5. VALSARTAN [Concomitant]
     Route: 048
  6. SALCATONIN [Concomitant]
     Route: 048

REACTIONS (3)
  - FALL [None]
  - PELVIC FRACTURE [None]
  - SPINAL FRACTURE [None]
